FAERS Safety Report 22607716 (Version 1)
Quarter: 2023Q2

REPORT INFORMATION
  Report Type: Spontaneous
  Country: US (occurrence: None)
  Receive Date: 20230616
  Receipt Date: 20230616
  Transmission Date: 20230722
  Serious: No
  Sender: FDA-Public Use
  Company Number: US-Hikma Pharmaceuticals USA Inc.-US-H14001-23-00325

PATIENT
  Sex: Female

DRUGS (1)
  1. TRIAZOLAM [Suspect]
     Active Substance: TRIAZOLAM
     Indication: Product used for unknown indication
     Dosage: HALF OF 0.25 MG TABLET
     Route: 065

REACTIONS (3)
  - Hypoaesthesia oral [Unknown]
  - Adverse event [Unknown]
  - Wrong technique in product usage process [Unknown]
